FAERS Safety Report 18971875 (Version 1)
Quarter: 2021Q1

REPORT INFORMATION
  Report Type: Spontaneous
  Country: US (occurrence: US)
  Receive Date: 20210305
  Receipt Date: 20210305
  Transmission Date: 20210420
  Serious: No
  Sender: FDA-Public Use
  Company Number: US-SA-2021SA072636

PATIENT
  Sex: Male

DRUGS (1)
  1. DUPIXENT [Suspect]
     Active Substance: DUPILUMAB
     Indication: ASTHMA
     Dosage: 300 MG, QOW
     Route: 058
     Dates: start: 20201211

REACTIONS (8)
  - Erythema [Unknown]
  - Eye irritation [Unknown]
  - Rash [Unknown]
  - Visual impairment [Unknown]
  - Dry skin [Unknown]
  - Testicular pain [Unknown]
  - Ocular hyperaemia [Unknown]
  - Hypersensitivity [Unknown]
